FAERS Safety Report 7787846-7 (Version None)
Quarter: 2011Q3

REPORT INFORMATION
  Report Type: 
  Country: None (occurrence: None)
  Receive Date: 20110930
  Receipt Date: 20110921
  Transmission Date: 20111222
  Serious: No
  Sender: FDA-Public Use
  Company Number: US-BIOGENIDEC-2010BI021142

PATIENT
  Sex: Female

DRUGS (1)
  1. TYSABRI [Suspect]
     Indication: MULTIPLE SCLEROSIS
     Route: 042
     Dates: start: 20100416

REACTIONS (9)
  - PARAESTHESIA [None]
  - STRESS [None]
  - FEELING HOT [None]
  - TEMPERATURE INTOLERANCE [None]
  - MUSCULOSKELETAL STIFFNESS [None]
  - FATIGUE [None]
  - DIZZINESS [None]
  - BAND SENSATION [None]
  - DRUG INEFFECTIVE [None]
